FAERS Safety Report 5836042-9 (Version None)
Quarter: 2008Q3

REPORT INFORMATION
  Report Type: 
  Country: None (occurrence: None)
  Receive Date: 20080806
  Receipt Date: 20080725
  Transmission Date: 20090109
  Serious: Yes (Other)
  Sender: FDA-Public Use
  Company Number: US-PFIZER INC-2008064054

PATIENT
  Sex: Female
  Weight: 65.9 kg

DRUGS (15)
  1. CHANTIX [Suspect]
     Indication: SMOKING CESSATION THERAPY
  2. WELLBUTRIN [Concomitant]
  3. ZOLPIDEM TARTRATE [Concomitant]
  4. AMBIEN [Concomitant]
  5. CLONAZEPAM [Concomitant]
  6. ACETYLSALICYLIC ACID SRT [Concomitant]
  7. AMLODIPINE [Concomitant]
  8. HYDROCHLOROTHIAZIDE [Concomitant]
  9. PREVACID [Concomitant]
  10. SIMVASTATIN [Concomitant]
  11. SULINDAC [Concomitant]
  12. PLAVIX [Concomitant]
  13. DRUG, UNSPECIFIED [Concomitant]
  14. ANALGESICS [Concomitant]
  15. AMITRIPTYLINE HCL [Concomitant]

REACTIONS (4)
  - FALL [None]
  - HALLUCINATION [None]
  - HEAD INJURY [None]
  - TRANSIENT ISCHAEMIC ATTACK [None]
